FAERS Safety Report 20841340 (Version 2)
Quarter: 2022Q2

REPORT INFORMATION
  Report Type: Report from Study
  Country: MX (occurrence: MX)
  Receive Date: 20220517
  Receipt Date: 20220525
  Transmission Date: 20220721
  Serious: Yes (Death, Hospitalization, Other)
  Sender: FDA-Public Use
  Company Number: MX-BRISTOL-MYERS SQUIBB COMPANY-2022-041237

PATIENT
  Age: 78 Year
  Sex: Male

DRUGS (1)
  1. SPRYCEL [Suspect]
     Active Substance: DASATINIB
     Indication: Chronic myeloid leukaemia
     Dosage: DAILY
     Dates: start: 20160704, end: 20220512

REACTIONS (2)
  - Myocardial infarction [Fatal]
  - Abscess limb [Unknown]

NARRATIVE: CASE EVENT DATE: 20220501
